FAERS Safety Report 19926113 (Version 1)
Quarter: 2021Q4

REPORT INFORMATION
  Report Type: Spontaneous
  Country: FI (occurrence: FI)
  Receive Date: 20211007
  Receipt Date: 20211007
  Transmission Date: 20220303
  Serious: Yes (Other)
  Sender: FDA-Public Use
  Company Number: FI-ABBVIE-21K-055-4108598-00

PATIENT
  Age: 60 Year
  Sex: Female

DRUGS (1)
  1. VALPROIC ACID [Suspect]
     Active Substance: VALPROIC ACID
     Indication: Migraine
     Route: 065

REACTIONS (2)
  - Chronic hepatitis [Unknown]
  - Off label use [Unknown]
